FAERS Safety Report 17429173 (Version 1)
Quarter: 2020Q1

REPORT INFORMATION
  Report Type: Spontaneous
  Country: FR (occurrence: FR)
  Receive Date: 20200218
  Receipt Date: 20200218
  Transmission Date: 20200409
  Serious: Yes (Hospitalization, Disabling, Other)
  Sender: FDA-Public Use
  Company Number: FR-SA-2019SA281526

PATIENT
  Age: 83 Year
  Sex: Female
  Weight: 62 kg

DRUGS (9)
  1. ARAVA [Suspect]
     Active Substance: LEFLUNOMIDE
     Indication: RHEUMATOID ARTHRITIS
     Dosage: 1 MG, QD
     Route: 048
     Dates: start: 2005
  2. EUTHYROX [Concomitant]
     Active Substance: LEVOTHYROXINE SODIUM
  3. MELOXICAM. [Concomitant]
     Active Substance: MELOXICAM
  4. CORTANCYL [Suspect]
     Active Substance: PREDNISONE
     Indication: RHEUMATOID ARTHRITIS
     Dosage: 5 MG (1 TABLET OF 5 MG)
     Route: 048
     Dates: start: 1988
  5. CORTANCYL [Suspect]
     Active Substance: PREDNISONE
     Indication: POLYARTHRITIS
     Dosage: 3 MG (3 TABLETS OF 1 MG)
  6. CORTANCYL [Suspect]
     Active Substance: PREDNISONE
     Indication: SCLERODERMA
  7. LOXEN [LOXOPROFEN SODIUM] [Concomitant]
     Active Substance: LOXOPROFEN SODIUM
  8. LYRICA [Concomitant]
     Active Substance: PREGABALIN
  9. CALCIPRAT [Concomitant]

REACTIONS (13)
  - Ear pain [Unknown]
  - Capillary fragility [Unknown]
  - Acne [Unknown]
  - Pain in extremity [Unknown]
  - Headache [Unknown]
  - Muscular weakness [Unknown]
  - Pulmonary fibrosis [Unknown]
  - Osteoporosis [Not Recovered/Not Resolved]
  - Eye haemorrhage [Unknown]
  - Back pain [Unknown]
  - Nausea [Unknown]
  - Bone fragmentation [Unknown]
  - Dizziness [Unknown]

NARRATIVE: CASE EVENT DATE: 2019
